FAERS Safety Report 17595172 (Version 1)
Quarter: 2020Q1

REPORT INFORMATION
  Report Type: Report from Study
  Country: US (occurrence: US)
  Receive Date: 20200328
  Receipt Date: 20200328
  Transmission Date: 20200409
  Serious: No
  Sender: FDA-Public Use
  Company Number: NVSC2020US079887

PATIENT
  Sex: Female
  Weight: 59.05 kg

DRUGS (1)
  1. TREPROSTINIL. [Suspect]
     Active Substance: TREPROSTINIL
     Indication: PULMONARY ARTERIAL HYPERTENSION
     Dosage: 23 NG/KG.MIN
     Route: 042
     Dates: start: 20200124

REACTIONS (2)
  - Erythema [Unknown]
  - Pruritus [Unknown]
